FAERS Safety Report 12632616 (Version 2)
Quarter: 2016Q3

REPORT INFORMATION
  Report Type: Spontaneous
  Country: US (occurrence: US)
  Receive Date: 20160808
  Receipt Date: 20160808
  Transmission Date: 20161109
  Serious: No
  Sender: FDA-Public Use
  Company Number: US-BEH-2015056246

PATIENT
  Sex: Female
  Weight: 59 kg

DRUGS (35)
  1. HIZENTRA [Suspect]
     Active Substance: HUMAN IMMUNOGLOBULIN G
     Route: 058
  2. IPRATROPIUM BROMIDE. [Concomitant]
     Active Substance: IPRATROPIUM BROMIDE
  3. GABAPETIN [Concomitant]
     Active Substance: GABAPENTIN
  4. ZANTAC [Concomitant]
     Active Substance: RANITIDINE HYDROCHLORIDE
  5. SINGULAIR [Concomitant]
     Active Substance: MONTELUKAST SODIUM
  6. CALCIUM W/VITAMIN D [Concomitant]
     Active Substance: CALCIUM\VITAMIN D
  7. EPIPEN [Concomitant]
     Active Substance: EPINEPHRINE
  8. LORATADINE. [Concomitant]
     Active Substance: LORATADINE
  9. AMITRIPTYLINE [Concomitant]
     Active Substance: AMITRIPTYLINE
  10. NASONEX [Concomitant]
     Active Substance: MOMETASONE FUROATE
  11. ALVESCO [Concomitant]
     Active Substance: CICLESONIDE
  12. HIZENTRA [Suspect]
     Active Substance: HUMAN IMMUNOGLOBULIN G
  13. QVAR [Concomitant]
     Active Substance: BECLOMETHASONE DIPROPIONATE
  14. MULTIVITAMIN [Concomitant]
     Active Substance: VITAMINS
  15. CHERATUSSIN AC [Concomitant]
     Active Substance: CODEINE PHOSPHATE\GUAIFENESIN
  16. OMEPRAZOLE. [Concomitant]
     Active Substance: OMEPRAZOLE
  17. ALL OTHER THERAPEUTIC PRODUCTS [Concomitant]
     Active Substance: UNSPECIFIED INGREDIENT
  18. BENZONATATE. [Concomitant]
     Active Substance: BENZONATATE
  19. AMBIEN [Concomitant]
     Active Substance: ZOLPIDEM TARTRATE
  20. PREDNISONE. [Concomitant]
     Active Substance: PREDNISONE
  21. LIDOCAINE. [Concomitant]
     Active Substance: LIDOCAINE
  22. CEFTIN [Concomitant]
     Active Substance: CEFUROXIME AXETIL
  23. TOBRAMYCIN. [Concomitant]
     Active Substance: TOBRAMYCIN
  24. DIPHENHYDRAMINE. [Concomitant]
     Active Substance: DIPHENHYDRAMINE
  25. METFORMIN [Concomitant]
     Active Substance: METFORMIN HYDROCHLORIDE
  26. KLONOPIN [Concomitant]
     Active Substance: CLONAZEPAM
  27. SIMVASTATIN. [Concomitant]
     Active Substance: SIMVASTATIN
  28. ZOLOFT [Concomitant]
     Active Substance: SERTRALINE HYDROCHLORIDE
  29. HIZENTRA [Suspect]
     Active Substance: HUMAN IMMUNOGLOBULIN G
     Indication: IMMUNODEFICIENCY COMMON VARIABLE
  30. ACETAMINOPHEN. [Concomitant]
     Active Substance: ACETAMINOPHEN
  31. TUSSIONEX PENNKINETIC [Concomitant]
     Active Substance: CHLORPHENIRAMINE\HYDROCODONE
  32. ALBUTEROL. [Concomitant]
     Active Substance: ALBUTEROL
  33. TRAMADOL. [Concomitant]
     Active Substance: TRAMADOL
  34. PATANASE [Concomitant]
     Active Substance: OLOPATADINE HYDROCHLORIDE
  35. LASIX [Concomitant]
     Active Substance: FUROSEMIDE

REACTIONS (2)
  - Cough [Unknown]
  - Dyspnoea [Unknown]
